FAERS Safety Report 6268779-4 (Version None)
Quarter: 2009Q3

REPORT INFORMATION
  Report Type: 
  Country: None (occurrence: None)
  Receive Date: 20090714
  Receipt Date: 20090714
  Transmission Date: 20100115
  Serious: No
  Sender: FDA-Public Use
  Company Number: None

PATIENT
  Sex: Female
  Weight: 68.0396 kg

DRUGS (2)
  1. ZICAM NASAL GEL MATRIXX INITIATIVES [Suspect]
     Indication: NASOPHARYNGITIS
     Dosage: ONE AS DIRECTED NASAL
     Route: 045
     Dates: start: 20020101, end: 20050101
  2. ZICAM GEL SWABS MATRIXX INITIATIVES [Suspect]
     Indication: NASOPHARYNGITIS
     Dosage: ONE AD DIRECTED NASAL
     Route: 045
     Dates: start: 20030101, end: 20050101

REACTIONS (1)
  - ANOSMIA [None]
